FAERS Safety Report 23598134 (Version 2)
Quarter: 2024Q1

REPORT INFORMATION
  Report Type: Report from Study
  Country: US (occurrence: US)
  Receive Date: 20240305
  Receipt Date: 20240328
  Transmission Date: 20240410
  Serious: Yes (Other)
  Sender: FDA-Public Use
  Company Number: US-ABBVIE-5658224

PATIENT
  Age: 79 Year
  Sex: Male
  Weight: 102.96 kg

DRUGS (2)
  1. HUMIRA [Suspect]
     Active Substance: ADALIMUMAB
     Indication: Rheumatoid arthritis
     Dosage: FORM STRENGTH: 40 MILLIGRAM  CITRATE FREE?2 YEARS AGO
     Route: 058
     Dates: end: 202306
  2. HUMIRA [Suspect]
     Active Substance: ADALIMUMAB
     Dosage: FORM STRENGTH: 40 MILLIGRAM  CITRATE FREE
     Route: 058

REACTIONS (8)
  - Osteomyelitis [Recovered/Resolved]
  - Wound [Recovered/Resolved]
  - Limb injury [Unknown]
  - Pain of skin [Not Recovered/Not Resolved]
  - Pain in extremity [Not Recovered/Not Resolved]
  - Skin discharge [Not Recovered/Not Resolved]
  - Lymphoedema [Not Recovered/Not Resolved]
  - Staphylococcal infection [Recovered/Resolved]

NARRATIVE: CASE EVENT DATE: 20230601
